FAERS Safety Report 18856846 (Version 1)
Quarter: 2021Q1

REPORT INFORMATION
  Report Type: Spontaneous
  Country: US (occurrence: US)
  Receive Date: 20210208
  Receipt Date: 20210208
  Transmission Date: 20210420
  Serious: No
  Sender: FDA-Public Use
  Company Number: US-AJANTA PHARMA USA INC.-2106447

PATIENT
  Age: 82 Year
  Sex: Male
  Weight: 101.82 kg

DRUGS (17)
  1. EZETIMIBE. [Concomitant]
     Active Substance: EZETIMIBE
  2. FINASTERIDE. [Concomitant]
     Active Substance: FINASTERIDE
  3. CENTRUM SILVER [Concomitant]
     Active Substance: MINERALS\VITAMINS
  4. PSYLLIUM HUSK. [Concomitant]
     Active Substance: PSYLLIUM HUSK
  5. SAW PALMETTO [Concomitant]
     Active Substance: HERBALS\SAW PALMETTO
  6. WARFARIN SODIUM. [Concomitant]
     Active Substance: WARFARIN SODIUM
  7. TAMSULOSIN HYDROCHLORIDE. [Concomitant]
     Active Substance: TAMSULOSIN HYDROCHLORIDE
  8. ASPIRIN. [Concomitant]
     Active Substance: ASPIRIN
  9. VITAMIN D [Concomitant]
     Active Substance: VITAMIN D NOS
  10. DULOXETINE (ANDA 208706) [Suspect]
     Active Substance: DULOXETINE
     Indication: DEPRESSION
     Route: 048
     Dates: end: 20200221
  11. VENLAFAXINE HYDROCHLORIDE. [Suspect]
     Active Substance: VENLAFAXINE HYDROCHLORIDE
     Dates: start: 20200217, end: 20200219
  12. TYLENOL [Concomitant]
     Active Substance: ACETAMINOPHEN
  13. ROSUVASTATIN CALCIUM. [Concomitant]
     Active Substance: ROSUVASTATIN CALCIUM
  14. COENZYME Q10 [Concomitant]
     Active Substance: DIETARY SUPPLEMENT\UBIDECARENONE
  15. CRANBERRY. [Concomitant]
     Active Substance: CRANBERRY
  16. LOSARTAN POTASSIUM. [Concomitant]
     Active Substance: LOSARTAN POTASSIUM
  17. METOPROLOL. [Concomitant]
     Active Substance: METOPROLOL

REACTIONS (6)
  - Dyspnoea [Recovered/Resolved]
  - Nausea [Recovered/Resolved]
  - Anxiety [Recovering/Resolving]
  - Decreased appetite [Recovered/Resolved]
  - Dizziness [Not Recovered/Not Resolved]
  - Terminal insomnia [Recovered/Resolved]

NARRATIVE: CASE EVENT DATE: 202002
